FAERS Safety Report 4347762-X (Version None)
Quarter: 2004Q2

REPORT INFORMATION
  Report Type: 
  Country: None (occurrence: None)
  Receive Date: 20040427
  Receipt Date: 20040416
  Transmission Date: 20050107
  Serious: Yes (Hospitalization)
  Sender: FDA-Public Use
  Company Number: 200411614FR

PATIENT
  Age: 91 Year
  Sex: Female

DRUGS (8)
  1. FLAGYL [Suspect]
     Dates: start: 20031114, end: 20031228
  2. SPECIAFOLDINE [Suspect]
     Route: 048
     Dates: start: 20030904, end: 20040104
  3. SMECTA [Suspect]
     Dates: start: 20031226, end: 20040102
  4. TARDYFERON [Suspect]
     Route: 048
     Dates: start: 20030905, end: 20040104
  5. AMLODIPINE [Suspect]
     Indication: HYPERTENSION
     Route: 048
     Dates: start: 20030904, end: 20040104
  6. ACTISKENAN [Suspect]
     Route: 048
     Dates: start: 20030904, end: 20040104
  7. RIFADIN [Concomitant]
     Indication: OSTEITIS
     Dates: end: 20030930
  8. CIPROFLOXACIN [Concomitant]
     Indication: OSTEITIS
     Dates: end: 20030930

REACTIONS (2)
  - CLOSTRIDIUM COLITIS [None]
  - THROMBOCYTOPENIA [None]
